FAERS Safety Report 10215935 (Version 1)
Quarter: 2014Q2

REPORT INFORMATION
  Report Type: Spontaneous
  Country: US (occurrence: None)
  Receive Date: 20140603
  Receipt Date: 20140603
  Transmission Date: 20141212
  Serious: No
  Sender: FDA-Public Use
  Company Number: None

PATIENT
  Age: 64 Year
  Sex: Female
  Weight: 56.7 kg

DRUGS (1)
  1. CITALOPRAM 10MG/BRAND [Suspect]
     Indication: DYSTHYMIC DISORDER
     Route: 048
     Dates: start: 20140422, end: 20140514

REACTIONS (3)
  - Disorientation [None]
  - Depression [None]
  - Abnormal dreams [None]
